FAERS Safety Report 12171733 (Version 1)
Quarter: 2016Q1

REPORT INFORMATION
  Report Type: Spontaneous
  Country: IT (occurrence: FR)
  Receive Date: 20160311
  Receipt Date: 20160311
  Transmission Date: 20160526
  Serious: Yes (Hospitalization)
  Sender: FDA-Public Use
  Company Number: FR-FRI-1000083140

PATIENT
  Age: 28 Year
  Sex: Female

DRUGS (3)
  1. NEBIVOLOL. [Suspect]
     Active Substance: NEBIVOLOL
     Dosage: 250 MG
     Route: 048
     Dates: start: 20160216, end: 20160216
  2. CHAMPIX [Suspect]
     Active Substance: VARENICLINE TARTRATE
     Indication: PRODUCT USED FOR UNKNOWN INDICATION
     Route: 048
  3. NEBIVOLOL. [Suspect]
     Active Substance: NEBIVOLOL
     Indication: TACHYCARDIA
     Route: 048

REACTIONS (4)
  - Overdose [Recovered/Resolved]
  - Bradycardia [Recovered/Resolved]
  - Off label use [Recovered/Resolved]
  - Suicidal ideation [Recovered/Resolved]

NARRATIVE: CASE EVENT DATE: 20160216
